FAERS Safety Report 7026323-8 (Version None)
Quarter: 2010Q4

REPORT INFORMATION
  Report Type: 
  Country: None (occurrence: None)
  Receive Date: 20101004
  Receipt Date: 20100930
  Transmission Date: 20110411
  Serious: Yes (Other)
  Sender: FDA-Public Use
  Company Number: JP-PFIZER INC-2010109418

PATIENT
  Age: 86 Year
  Sex: Male

DRUGS (2)
  1. AMLODIPINE BESYLATE [Suspect]
     Dosage: 5 MG, 1X/DAY
  2. AMLODIPINE BESYLATE [Suspect]
     Dosage: 2.5 MG, 1X/DAY

REACTIONS (1)
  - LEUKOPLAKIA ORAL [None]
